FAERS Safety Report 9526621 (Version 2)
Quarter: 2013Q3

REPORT INFORMATION
  Report Type: Spontaneous
  Country: JP (occurrence: JP)
  Receive Date: 20130916
  Receipt Date: 20130927
  Transmission Date: 20140515
  Serious: Yes (Death, Other)
  Sender: FDA-Public Use
  Company Number: PHHY2013JP099810

PATIENT
  Age: 56 Year
  Sex: Male

DRUGS (8)
  1. 5-FLUOROURACIL [Suspect]
     Indication: RECTAL CANCER METASTATIC
     Dosage: 400 MG/M2, UNK
  2. 5-FLUOROURACIL [Suspect]
     Dosage: 2400 MG/M2, UNK
  3. OXALIPLATIN [Suspect]
     Indication: RECTAL CANCER METASTATIC
     Dosage: 85 MG/M2, UNK
  4. FOLINIC ACID [Suspect]
     Indication: RECTAL CANCER METASTATIC
     Dosage: 200 MG/M2, UNK
  5. IRINOTECAN [Suspect]
     Indication: RECTAL CANCER METASTATIC
     Dosage: 180 MG/M2, UNK
  6. BEVACIZUMAB [Suspect]
     Indication: RECTAL CANCER METASTATIC
  7. CETUXIMAB [Suspect]
     Indication: RECTAL CANCER METASTATIC
  8. CETUXIMAB [Suspect]
     Indication: METASTASES TO LUNG

REACTIONS (8)
  - Metastases to central nervous system [Fatal]
  - Rectal cancer metastatic [Fatal]
  - Metastases to lung [Unknown]
  - Neuropathy peripheral [Recovering/Resolving]
  - Splenomegaly [Unknown]
  - Hypersplenism [Unknown]
  - Haemorrhagic diathesis [Unknown]
  - Thrombocytopenia [Recovering/Resolving]
